FAERS Safety Report 5973820-X (Version None)
Quarter: 2008Q4

REPORT INFORMATION
  Report Type: 
  Country: None (occurrence: None)
  Receive Date: 20081201
  Receipt Date: 20081120
  Transmission Date: 20090506
  Serious: Yes (Hospitalization)
  Sender: FDA-Public Use
  Company Number: NL-AMGEN-US320708

PATIENT
  Age: 61 Year
  Sex: Male
  Weight: 66 kg

DRUGS (3)
  1. ENBREL [Suspect]
     Indication: RHEUMATOID ARTHRITIS
     Route: 058
     Dates: start: 20080819, end: 20081010
  2. SULFASALAZINE [Concomitant]
     Route: 065
     Dates: start: 19920709
  3. SULINDAC [Concomitant]
     Route: 065
     Dates: start: 20050512

REACTIONS (1)
  - GUILLAIN-BARRE SYNDROME [None]
